FAERS Safety Report 25312582 (Version 1)
Quarter: 2025Q2

REPORT INFORMATION
  Report Type: Spontaneous
  Country: FR (occurrence: FR)
  Receive Date: 20250514
  Receipt Date: 20250514
  Transmission Date: 20250717
  Serious: Yes (Life-Threatening, Hospitalization, Other)
  Sender: PFIZER
  Company Number: None

PATIENT
  Age: 46 Year
  Sex: Male

DRUGS (14)
  1. ATRACURIUM BESYLATE [Suspect]
     Active Substance: ATRACURIUM BESYLATE
     Route: 065
  2. LIDOCAINE HYDROCHLORIDE [Suspect]
     Active Substance: LIDOCAINE HYDROCHLORIDE
     Route: 065
  3. BROMAZEPAM [Suspect]
     Active Substance: BROMAZEPAM
     Route: 065
  4. MIDAZOLAM [Suspect]
     Active Substance: MIDAZOLAM
     Indication: Sedation
     Route: 065
     Dates: start: 20241125, end: 20241128
  5. HERBALS\TETRAHYDROCANNABINOL UNSPECIFIED [Suspect]
     Active Substance: HERBALS\TETRAHYDROCANNABINOL UNSPECIFIED
     Route: 065
  6. COCAINE [Suspect]
     Active Substance: COCAINE
     Route: 065
  7. LEVAMISOLE [Suspect]
     Active Substance: LEVAMISOLE
     Route: 065
  8. LEVAMISOLE [Suspect]
     Active Substance: LEVAMISOLE
     Route: 065
  9. MORPHINE SULFATE [Suspect]
     Active Substance: MORPHINE SULFATE
     Route: 065
  10. ACETAMINOPHEN\OPIUM [Suspect]
     Active Substance: ACETAMINOPHEN\OPIUM
     Route: 065
  11. SUFENTANIL [Suspect]
     Active Substance: SUFENTANIL
     Indication: Sedation
     Route: 065
     Dates: start: 20241125, end: 20241128
  12. EPHEDRINE [Suspect]
     Active Substance: EPHEDRINE
     Route: 065
  13. THEBAINE [Suspect]
     Active Substance: THEBAINE
     Route: 065
  14. SKENAN [Suspect]
     Active Substance: MORPHINE SULFATE
     Route: 065

REACTIONS (10)
  - Cardio-respiratory arrest [Recovered/Resolved]
  - Miosis [Recovered/Resolved]
  - Loss of consciousness [Recovering/Resolving]
  - Hyperkalaemia [Unknown]
  - Pulmonary embolism [Unknown]
  - Renal failure [Unknown]
  - Agitation [Unknown]
  - Melaena [Unknown]
  - Cholestasis [Unknown]
  - Drug use disorder [Unknown]

NARRATIVE: CASE EVENT DATE: 20241125
